FAERS Safety Report 5520677-7 (Version None)
Quarter: 2007Q4

REPORT INFORMATION
  Report Type: 
  Country: None (occurrence: None)
  Receive Date: 20071119
  Receipt Date: 20071111
  Transmission Date: 20080405
  Serious: Yes (Other)
  Sender: FDA-Public Use
  Company Number: PHEH2007US14686

PATIENT
  Age: 4 Month
  Sex: Male

DRUGS (2)
  1. TRILEPTAL [Suspect]
     Indication: CONVULSION
     Dosage: 0.5 ML, TID
  2. TRILEPTAL [Suspect]
     Dosage: 0.5 ML, BID

REACTIONS (1)
  - ABNORMAL BEHAVIOUR [None]
